FAERS Safety Report 11984493 (Version 2)
Quarter: 2016Q2

REPORT INFORMATION
  Report Type: Spontaneous
  Country: BE (occurrence: BE)
  Receive Date: 20160201
  Receipt Date: 20160413
  Transmission Date: 20160815
  Serious: Yes (Death, Hospitalization)
  Sender: FDA-Public Use
  Company Number: BE-JNJFOC-20160123465

PATIENT
  Age: 66 Year
  Sex: Male

DRUGS (3)
  1. XARELTO [Suspect]
     Active Substance: RIVAROXABAN
     Indication: CEREBROVASCULAR ACCIDENT PROPHYLAXIS
     Route: 048
     Dates: start: 201510, end: 20160120
  2. ASPIRINE [Concomitant]
     Active Substance: ASPIRIN
     Route: 065
  3. XARELTO [Suspect]
     Active Substance: RIVAROXABAN
     Indication: ATRIAL FIBRILLATION
     Route: 048
     Dates: start: 201510, end: 20160120

REACTIONS (2)
  - Hepatic failure [Fatal]
  - Vasculitis [Unknown]

NARRATIVE: CASE EVENT DATE: 20151229
